FAERS Safety Report 9573263 (Version 1)
Quarter: 2013Q4

REPORT INFORMATION
  Report Type: Spontaneous
  Country: US (occurrence: US)
  Receive Date: 20131001
  Receipt Date: 20131001
  Transmission Date: 20140711
  Serious: No
  Sender: FDA-Public Use
  Company Number: US-PURDUE-USA-2012-0082641

PATIENT
  Sex: Female

DRUGS (2)
  1. BUTRANS [Suspect]
     Indication: SURGERY
     Dosage: 10 MCG, Q1H
     Route: 062
     Dates: start: 20120210
  2. BUTRANS [Suspect]
     Dosage: 5 MCG, Q1H
     Route: 062
     Dates: start: 201201, end: 20120210

REACTIONS (3)
  - Inadequate analgesia [Unknown]
  - Drug ineffective [Not Recovered/Not Resolved]
  - Pain [Not Recovered/Not Resolved]
